FAERS Safety Report 15370063 (Version 1)
Quarter: 2018Q3

REPORT INFORMATION
  Report Type: Spontaneous
  Country: US (occurrence: US)
  Receive Date: 20180911
  Receipt Date: 20180911
  Transmission Date: 20181010
  Serious: No
  Sender: FDA-Public Use
  Company Number: US-PFIZER INC-2018364560

PATIENT
  Age: 68 Year
  Sex: Male

DRUGS (3)
  1. ATORVASTATIN CALCIUM. [Suspect]
     Active Substance: ATORVASTATIN CALCIUM
     Indication: MUSCLE SPASMS
  2. XELJANZ XR [Suspect]
     Active Substance: TOFACITINIB CITRATE
     Indication: RHEUMATOID ARTHRITIS
     Dosage: UNK
  3. ATORVASTATIN CALCIUM. [Suspect]
     Active Substance: ATORVASTATIN CALCIUM
     Indication: MUSCLE TIGHTNESS
     Dosage: 10 MG, DAILY
     Route: 048
     Dates: start: 2018, end: 2018

REACTIONS (1)
  - Muscle spasms [Recovered/Resolved]

NARRATIVE: CASE EVENT DATE: 201808
